FAERS Safety Report 24078295 (Version 1)
Quarter: 2024Q3

REPORT INFORMATION
  Report Type: Spontaneous
  Country: US (occurrence: US)
  Receive Date: 20240711
  Receipt Date: 20240711
  Transmission Date: 20241016
  Serious: Yes (Death, Hospitalization)
  Sender: MYLAN
  Company Number: US-MYLANLABS-2024M1063780

PATIENT
  Age: 5 Decade
  Sex: Male

DRUGS (25)
  1. DOCETAXEL [Suspect]
     Active Substance: DOCETAXEL\DOCETAXEL ANHYDROUS
     Indication: Malignant splenic neoplasm
     Dosage: UNK, CYCLE, 2 CYCLES
     Route: 065
  2. DOCETAXEL [Suspect]
     Active Substance: DOCETAXEL\DOCETAXEL ANHYDROUS
     Indication: Angiosarcoma
  3. GEMCITABINE [Suspect]
     Active Substance: GEMCITABINE
     Indication: Malignant splenic neoplasm
     Dosage: UNK
     Route: 065
  4. GEMCITABINE [Suspect]
     Active Substance: GEMCITABINE
     Indication: Angiosarcoma
  5. PREDNISONE [Suspect]
     Active Substance: PREDNISONE
     Indication: Colitis
     Dosage: UNK
     Route: 065
  6. PREDNISONE [Suspect]
     Active Substance: PREDNISONE
     Dosage: UNK, DOSE REDUCED
     Route: 065
  7. DOXORUBICIN [Suspect]
     Active Substance: DOXORUBICIN
     Indication: Malignant splenic neoplasm
     Dosage: UNK, CYCLE, 6 CYCLES
     Route: 065
  8. DOXORUBICIN [Suspect]
     Active Substance: DOXORUBICIN
     Indication: Angiosarcoma
  9. IFOSFAMIDE [Suspect]
     Active Substance: IFOSFAMIDE
     Indication: Malignant splenic neoplasm
     Dosage: UNK, CYCLE,  6 CYCLES
     Route: 065
  10. IFOSFAMIDE [Suspect]
     Active Substance: IFOSFAMIDE
     Indication: Angiosarcoma
  11. DEXRAZOXANE [Suspect]
     Active Substance: DEXRAZOXANE
     Indication: Malignant splenic neoplasm
     Dosage: UNK, CYCLE, 6 CYCLES
     Route: 065
  12. DEXRAZOXANE [Suspect]
     Active Substance: DEXRAZOXANE
     Indication: Angiosarcoma
  13. MESNA [Suspect]
     Active Substance: MESNA
     Indication: Malignant splenic neoplasm
     Dosage: UNK, CYCLE, 6 CYCLES
     Route: 065
  14. MESNA [Suspect]
     Active Substance: MESNA
     Indication: Angiosarcoma
  15. TRABECTEDIN [Suspect]
     Active Substance: TRABECTEDIN
     Indication: Malignant splenic neoplasm
     Dosage: UNK, CYCLE, 2 CYCLES
     Route: 065
  16. TRABECTEDIN [Suspect]
     Active Substance: TRABECTEDIN
     Indication: Angiosarcoma
  17. METHYLPREDNISOLONE [Suspect]
     Active Substance: METHYLPREDNISOLONE
     Indication: Colitis
     Dosage: UNK
     Route: 065
  18. METHYLPREDNISOLONE [Suspect]
     Active Substance: METHYLPREDNISOLONE
     Dosage: UNK, DOSE REDUCED
     Route: 065
  19. INFLIXIMAB [Suspect]
     Active Substance: INFLIXIMAB
     Indication: Colitis
     Dosage: UNK
     Route: 065
  20. BEXSERO [Concomitant]
     Active Substance: NEISSERIA MENINGITIDIS GROUP B FHBP FUSION PROTEIN ANTIGEN\NEISSERIA MENINGITIDIS GROUP B NADA PROTE
     Indication: Prophylaxis
     Dosage: UNK
     Route: 065
  21. MENINGOCOCCAL POLYSACCHARIDE VACCINE, GROUPS A, C, Y,W135 COMBINED [Concomitant]
     Active Substance: MENINGOCOCCAL POLYSACCHARIDE VACCINE, GROUPS A, C, Y,W135 COMBINED
     Indication: Prophylaxis
     Dosage: UNK
     Route: 065
  22. VANCOMYCIN [Concomitant]
     Active Substance: VANCOMYCIN
     Indication: Clostridium difficile infection
     Dosage: UNK
     Route: 065
  23. PREVNAR 13 [Concomitant]
     Active Substance: STREPTOCOCCUS PNEUMONIAE TYPE 1 CAPSULAR POLYSACCHARIDE DIPHTHERIA CRM197 PROTEIN CONJUGATE ANTIGEN\
     Indication: Prophylaxis
     Dosage: UNK
     Route: 065
  24. CEFTRIAXONE [Concomitant]
     Active Substance: CEFTRIAXONE\CEFTRIAXONE SODIUM
     Indication: Pharyngitis
     Dosage: UNK
     Route: 065
  25. AMOXICILLIN [Concomitant]
     Active Substance: AMOXICILLIN
     Indication: Pharyngitis
     Dosage: UNK
     Route: 065

REACTIONS (4)
  - Post procedural infection [Fatal]
  - Streptococcal infection [Fatal]
  - Pneumococcal sepsis [Fatal]
  - Drug intolerance [Unknown]
